FAERS Safety Report 9326373 (Version 1)
Quarter: 2013Q2

REPORT INFORMATION
  Report Type: Spontaneous
  Country: US (occurrence: US)
  Receive Date: 20130604
  Receipt Date: 20130604
  Transmission Date: 20140414
  Serious: Yes (Hospitalization)
  Sender: FDA-Public Use
  Company Number: US-ELI_LILLY_AND_COMPANY-US201304005830

PATIENT
  Sex: Male
  Weight: 83.9 kg

DRUGS (9)
  1. ADCIRCA [Suspect]
     Indication: PULMONARY HYPERTENSION
     Dosage: 40 MG, QD
     Route: 048
     Dates: start: 20130404, end: 20130418
  2. COREG [Concomitant]
  3. FINASTERIDE [Concomitant]
  4. ALDACTONE [Concomitant]
  5. LIPITOR [Concomitant]
  6. MULTIVITAMIN [Concomitant]
  7. INSULIN [Concomitant]
  8. LASIX [Concomitant]
  9. KAOPECTATE [Concomitant]

REACTIONS (2)
  - Cardiac failure congestive [Recovering/Resolving]
  - Diarrhoea [Recovered/Resolved]
